FAERS Safety Report 7771111-8 (Version None)
Quarter: 2011Q3

REPORT INFORMATION
  Report Type: 
  Country: None (occurrence: None)
  Receive Date: 20110922
  Receipt Date: 20110920
  Transmission Date: 20111222
  Serious: Yes (Death)
  Sender: FDA-Public Use
  Company Number: FR-PFIZER INC-2011221594

PATIENT
  Age: 46 Year
  Sex: Female

DRUGS (1)
  1. SUTENT [Suspect]
     Indication: RENAL CELL CARCINOMA
     Dosage: 50 MG 1X/DAY, 4 WEEKS ON AND 2 WEEKS OFF

REACTIONS (3)
  - DIARRHOEA [None]
  - DEATH [None]
  - ASTHENIA [None]
